FAERS Safety Report 7897708-2 (Version None)
Quarter: 2011Q4

REPORT INFORMATION
  Report Type: 
  Country: None (occurrence: None)
  Receive Date: 20111107
  Receipt Date: 20111101
  Transmission Date: 20120403
  Serious: Yes (Death)
  Sender: FDA-Public Use
  Company Number: US-GILEAD-2011-0044732

PATIENT
  Sex: Female

DRUGS (3)
  1. EPOPROSTENOL SODIUM [Concomitant]
  2. LETAIRIS [Suspect]
     Indication: SCLERODERMA
  3. LETAIRIS [Suspect]
     Indication: PULMONARY HYPERTENSION
     Dosage: 5 MG, UNK
     Route: 048
     Dates: start: 20100518, end: 20100527

REACTIONS (1)
  - PULMONARY HYPERTENSION [None]
